FAERS Safety Report 17905736 (Version 1)
Quarter: 2020Q2

REPORT INFORMATION
  Report Type: Spontaneous
  Country: US (occurrence: US)
  Receive Date: 20200616
  Receipt Date: 20200616
  Transmission Date: 20200714
  Serious: Yes (Other)
  Sender: FDA-Public Use
  Company Number: None

PATIENT
  Age: 38 Year
  Sex: Male
  Weight: 83.25 kg

DRUGS (1)
  1. MERY ALCOHOL BASED HAND SANITIZER [Suspect]
     Active Substance: ALCOHOL
     Indication: INFECTION PROPHYLAXIS
     Route: 061
     Dates: start: 20200611, end: 20200613

REACTIONS (3)
  - Application site rash [None]
  - Manufacturing materials issue [None]
  - Product label issue [None]

NARRATIVE: CASE EVENT DATE: 20200616
